FAERS Safety Report 11329818 (Version 7)
Quarter: 2016Q1

REPORT INFORMATION
  Report Type: Report from Study
  Country: KR (occurrence: KR)
  Receive Date: 20150803
  Receipt Date: 20160218
  Transmission Date: 20160525
  Serious: Yes (Life-Threatening, Hospitalization)
  Sender: FDA-Public Use
  Company Number: PHHY2015KR092599

PATIENT
  Age: 54 Year
  Sex: Female

DRUGS (3)
  1. TASIGNA [Suspect]
     Active Substance: NILOTINIB
     Dosage: 300 MG, BID (600 MG PER DAY)
     Route: 048
     Dates: start: 20150727, end: 201511
  2. TASIGNA [Suspect]
     Active Substance: NILOTINIB
     Dosage: 150 MG, BID (300 MG PER DAY)
     Route: 048
     Dates: start: 2015, end: 20150726
  3. TASIGNA [Suspect]
     Active Substance: NILOTINIB
     Indication: CHRONIC MYELOID LEUKAEMIA
     Dosage: 300 MG, BID (600 MG PER DAY)
     Route: 048
     Dates: start: 20150627

REACTIONS (9)
  - Alopecia [Not Recovered/Not Resolved]
  - Myalgia [Recovered/Resolved]
  - White blood cell count increased [Unknown]
  - Vision blurred [Not Recovered/Not Resolved]
  - Abdominal pain [Not Recovered/Not Resolved]
  - Electrocardiogram abnormal [Recovered/Resolved]
  - Hepatic enzyme increased [Recovered/Resolved]
  - Respiratory arrest [Recovered/Resolved]
  - White blood cell count decreased [Unknown]

NARRATIVE: CASE EVENT DATE: 2015
